FAERS Safety Report 16072133 (Version 1)
Quarter: 2019Q1

REPORT INFORMATION
  Report Type: Spontaneous
  Country: US (occurrence: US)
  Receive Date: 20190213
  Receipt Date: 20190213
  Transmission Date: 20190418
  Serious: Yes (Hospitalization)
  Sender: FDA-Public Use
  Company Number: None

PATIENT
  Age: 4 Year
  Sex: Female

DRUGS (3)
  1. TOBRAMYCIN. [Suspect]
     Active Substance: TOBRAMYCIN
     Indication: DEPENDENCE ON RESPIRATOR
     Dosage: ?          OTHER ROUTE:NEBULIZED?
     Dates: start: 20190117
  2. PENCILILLIN [Concomitant]
  3. TOPAMAX [Concomitant]
     Active Substance: TOPIRAMATE

REACTIONS (1)
  - Viral infection [None]

NARRATIVE: CASE EVENT DATE: 20190211
